FAERS Safety Report 18447914 (Version 3)
Quarter: 2021Q4

REPORT INFORMATION
  Report Type: Other
  Country: JP (occurrence: JP)
  Receive Date: 20201101
  Receipt Date: 20211018
  Transmission Date: 20220303
  Serious: Yes (Hospitalization, Other)
  Sender: FDA-Public Use
  Company Number: JP-CHUGAI-A2020046590ROCHE

PATIENT
  Age: 43 Year
  Sex: Female
  Weight: 53 kg

DRUGS (4)
  1. ATEZOLIZUMAB [Suspect]
     Active Substance: ATEZOLIZUMAB
     Indication: Non-small cell lung cancer
     Route: 041
     Dates: start: 20200902, end: 20201027
  2. BEVACIZUMAB [Suspect]
     Active Substance: BEVACIZUMAB
     Indication: Non-small cell lung cancer
     Route: 042
     Dates: start: 20200902, end: 20201027
  3. CARBOPLATIN [Suspect]
     Active Substance: CARBOPLATIN
     Indication: Non-small cell lung cancer
     Route: 041
     Dates: start: 20200902, end: 20201027
  4. PACLITAXEL [Suspect]
     Active Substance: PACLITAXEL
     Indication: Non-small cell lung cancer
     Route: 041
     Dates: start: 20200902, end: 20201027

REACTIONS (6)
  - Pneumothorax [Recovered/Resolved]
  - Syncope [Recovered/Resolved]
  - Pleural effusion [Unknown]
  - Lung cyst [Unknown]
  - Neutrophil count decreased [Unknown]
  - Hypokalaemia [Unknown]

NARRATIVE: CASE EVENT DATE: 20200917
